FAERS Safety Report 5966366-6 (Version None)
Quarter: 2008Q4

REPORT INFORMATION
  Report Type: 
  Country: None (occurrence: None)
  Receive Date: 20081125
  Receipt Date: 20081118
  Transmission Date: 20090506
  Serious: Yes (Hospitalization, Other)
  Sender: FDA-Public Use
  Company Number: US-ABBOTT-08P-163-0488436-00

PATIENT
  Age: 34 Year
  Sex: Female

DRUGS (3)
  1. HUMIRA [Suspect]
     Indication: CROHN'S DISEASE
     Route: 058
     Dates: start: 20070801, end: 20080401
  2. HUMIRA [Suspect]
     Route: 058
     Dates: start: 20080801
  3. INFLIXIMAB [Suspect]
     Indication: CROHN'S DISEASE
     Route: 042
     Dates: start: 20010101, end: 20070801

REACTIONS (3)
  - ABDOMINAL PAIN [None]
  - LUNG DISORDER [None]
  - PNEUMONIA [None]
